FAERS Safety Report 9988916 (Version 1)
Quarter: 2014Q1

REPORT INFORMATION
  Report Type: Spontaneous
  Country: US (occurrence: US)
  Receive Date: 20140310
  Receipt Date: 20140310
  Transmission Date: 20141002
  Serious: No
  Sender: FDA-Public Use
  Company Number: US-ABBVIE-13P-163-1128426-00

PATIENT
  Age: 39 Year
  Sex: Female
  Weight: 60.38 kg

DRUGS (7)
  1. HUMIRA [Suspect]
     Indication: CROHN^S DISEASE
     Dates: start: 20130718, end: 20130718
  2. HUMIRA [Suspect]
     Dates: start: 20130801, end: 20130801
  3. IMURAN [Concomitant]
     Indication: CROHN^S DISEASE
  4. PREDNISONE [Concomitant]
     Indication: CROHN^S DISEASE
  5. PROTONIX [Concomitant]
     Indication: GASTROOESOPHAGEAL REFLUX DISEASE
  6. SEASONIQUE [Concomitant]
     Indication: CONTRACEPTION
  7. AMBIEN [Concomitant]
     Indication: INSOMNIA

REACTIONS (3)
  - Diarrhoea [Recovered/Resolved]
  - Rash [Not Recovered/Not Resolved]
  - Nausea [Recovered/Resolved]
